FAERS Safety Report 5445554-1 (Version None)
Quarter: 2007Q3

REPORT INFORMATION
  Report Type: 
  Country: None (occurrence: None)
  Receive Date: 20070731
  Receipt Date: 20070619
  Transmission Date: 20080115
  Serious: No
  Sender: FDA-Public Use
  Company Number: US200706004495

PATIENT
  Age: 66 Year
  Sex: Female
  Weight: 69.8 kg

DRUGS (5)
  1. BYETTA [Suspect]
     Indication: TYPE 2 DIABETES MELLITUS
     Dosage: 5 UG, 2/D, SUBCUTANEOUS
     Route: 058
     Dates: start: 20070525
  2. LANTUS [Concomitant]
  3. METFORMIN HCL [Concomitant]
  4. ASPIRIN [Concomitant]
  5. PROTONIX [Concomitant]

REACTIONS (6)
  - ERUCTATION [None]
  - FATIGUE [None]
  - GASTROOESOPHAGEAL REFLUX DISEASE [None]
  - INJECTION SITE HAEMORRHAGE [None]
  - INJECTION SITE IRRITATION [None]
  - NAUSEA [None]
